FAERS Safety Report 23433128 (Version 1)
Quarter: 2024Q1

REPORT INFORMATION
  Report Type: Spontaneous
  Country: US (occurrence: None)
  Receive Date: 20240123
  Receipt Date: 20240123
  Transmission Date: 20240410
  Serious: No
  Sender: FDA-Public Use
  Company Number: None

PATIENT
  Sex: Female

DRUGS (1)
  1. VERZENIO [Suspect]
     Active Substance: ABEMACICLIB
     Indication: Intraductal proliferative breast lesion
     Dosage: FREQUENCY : TWICE A DAY;?
     Route: 048
     Dates: start: 202302

REACTIONS (1)
  - Hospitalisation [None]
